FAERS Safety Report 7466462-0 (Version None)
Quarter: 2011Q2

REPORT INFORMATION
  Report Type: 
  Country: None (occurrence: None)
  Receive Date: 20110509
  Receipt Date: 20110105
  Transmission Date: 20111010
  Serious: No
  Sender: FDA-Public Use
  Company Number: US-SANOFI-AVENTIS-2011SA001319

PATIENT
  Age: 66 Year
  Sex: Female

DRUGS (2)
  1. APIDRA [Suspect]
     Dosage: DOSE:3 UNIT(S)
     Route: 058
     Dates: start: 20101101
  2. LANTUS [Suspect]
     Dates: start: 20101101

REACTIONS (2)
  - NASOPHARYNGITIS [None]
  - INFLUENZA [None]
